FAERS Safety Report 5778568-2 (Version None)
Quarter: 2008Q2

REPORT INFORMATION
  Report Type: 
  Country: None (occurrence: None)
  Receive Date: 20080618
  Receipt Date: 20080618
  Transmission Date: 20081010
  Serious: Yes (Hospitalization)
  Sender: FDA-Public Use
  Company Number: None

PATIENT
  Sex: Male

DRUGS (1)
  1. INVANZ [Suspect]
     Indication: PYELONEPHRITIS
     Dosage: IV
     Route: 042
     Dates: start: 20080420, end: 20080430

REACTIONS (4)
  - AGITATION [None]
  - ASTHENIA [None]
  - BALANCE DISORDER [None]
  - CONFUSIONAL STATE [None]
